FAERS Safety Report 14525491 (Version 3)
Quarter: 2018Q4

REPORT INFORMATION
  Report Type: Spontaneous
  Country: FR (occurrence: FR)
  Receive Date: 20180213
  Receipt Date: 20181025
  Transmission Date: 20190204
  Serious: Yes (Death, Life-Threatening, Other)
  Sender: FDA-Public Use
  Company Number: FR-MYLANLABS-2018M1011157

PATIENT
  Age: 14 Year
  Sex: Male

DRUGS (14)
  1. BUDESONIDE. [Suspect]
     Active Substance: BUDESONIDE
     Indication: HYPOALBUMINAEMIA
     Dosage: 9 MG, DAILY
     Route: 048
     Dates: start: 20130701
  2. CALCIUM HEPARIN [Concomitant]
     Indication: THROMBOSIS
  3. SOMATOSTATIN [Suspect]
     Active Substance: SOMATOSTATIN
     Indication: GASTROINTESTINAL HAEMORRHAGE
     Dosage: 50 ?G, BID (50 ?G, 2 TIMES DAILY)
     Route: 058
  4. CALCIUM HEPARIN [Concomitant]
     Indication: ANTICOAGULANT THERAPY
     Dosage: UNK
     Route: 058
  5. SOMATOSTATIN                       /00603102/ [Concomitant]
     Indication: GASTROINTESTINAL HAEMORRHAGE
  6. SOMATOSTATIN                       /00603102/ [Concomitant]
     Indication: HYPOALBUMINAEMIA
     Dosage: 25 ?G, QH
     Route: 042
  7. SOMATOSTATIN [Suspect]
     Active Substance: SOMATOSTATIN
     Indication: HYPOALBUMINAEMIA
     Dosage: 25 ?G, EVERY HOUR
     Route: 042
  8. BUDESONIDE. [Suspect]
     Active Substance: BUDESONIDE
     Indication: GASTROINTESTINAL HAEMORRHAGE
  9. BUDESONIDE. [Suspect]
     Active Substance: BUDESONIDE
     Indication: GASTROINTESTINAL HAEMORRHAGE
     Dosage: UNK
     Route: 048
  10. SOMATOSTATIN [Suspect]
     Active Substance: SOMATOSTATIN
     Indication: HYPOALBUMINAEMIA
     Dosage: 50 ?G, QD
     Route: 058
  11. SOMATOSTATIN                       /00603102/ [Concomitant]
     Indication: GASTROINTESTINAL HAEMORRHAGE
  12. BUDESONIDE. [Suspect]
     Active Substance: BUDESONIDE
     Indication: HYPOALBUMINAEMIA
     Dosage: 50 MG, QD
     Route: 048
  13. ALBUMIN [Concomitant]
     Active Substance: ALBUMIN HUMAN
     Indication: HYPOALBUMINAEMIA
     Dosage: UNK
  14. SOMATOSTATIN                       /00603102/ [Concomitant]
     Indication: HYPOALBUMINAEMIA
     Dosage: 100 ?G, QD
     Route: 058

REACTIONS (8)
  - Drug ineffective for unapproved indication [Fatal]
  - Epstein-Barr virus infection [Unknown]
  - Cushing^s syndrome [Unknown]
  - Hypokalaemia [Unknown]
  - Death [Fatal]
  - Off label use [Fatal]
  - Product use issue [Fatal]
  - Precursor B-lymphoblastic lymphoma [Unknown]
